FAERS Safety Report 23654632 (Version 9)
Quarter: 2024Q3

REPORT INFORMATION
  Report Type: Report from Study
  Country: US (occurrence: US)
  Receive Date: 20240320
  Receipt Date: 20240827
  Transmission Date: 20241017
  Serious: Yes (Hospitalization, Other)
  Sender: JAZZ
  Company Number: USA-GW00300-2024-GWEP19022 - CANNABIDIOL IN LGS AND DS000003

PATIENT
  Age: 36 Year
  Sex: Male
  Weight: 42 kg

DRUGS (21)
  1. EPIDIOLEX [Suspect]
     Active Substance: CANNABIDIOL
     Indication: Epilepsy
     Dosage: UNK
     Route: 048
     Dates: start: 20190615
  2. EPIDIOLEX [Suspect]
     Active Substance: CANNABIDIOL
     Dosage: 2 MILLIGRAM, TID
     Route: 048
     Dates: start: 2019, end: 20240220
  3. EPIDIOLEX [Suspect]
     Active Substance: CANNABIDIOL
     Dosage: 2 MILLILITER, TID
     Route: 048
     Dates: start: 20190615
  4. EPIDIOLEX [Suspect]
     Active Substance: CANNABIDIOL
     Dosage: 14 MILLIGRAM/KILOGRAM, DAILY
     Route: 048
     Dates: start: 20230509
  5. EPIDIOLEX [Suspect]
     Active Substance: CANNABIDIOL
     Dosage: 13.5 MILLIGRAM/KILOGRAM, QD
     Route: 048
     Dates: start: 20240206
  6. EPIDIOLEX [Suspect]
     Active Substance: CANNABIDIOL
     Dosage: 13 MILLIGRAM/KILOGRAM, DAILY
     Route: 048
     Dates: start: 20240221
  7. EPIDIOLEX [Suspect]
     Active Substance: CANNABIDIOL
     Dosage: 1.5 MILLILITER, BID
     Route: 048
     Dates: start: 20240221
  8. EPIDIOLEX [Suspect]
     Active Substance: CANNABIDIOL
     Dosage: 2 MILLILITER, QD
     Route: 048
     Dates: start: 20240221
  9. EPIDIOLEX [Suspect]
     Active Substance: CANNABIDIOL
     Dosage: 2 MILLILITER, QD
     Route: 048
     Dates: start: 20240403
  10. EPIDIOLEX [Suspect]
     Active Substance: CANNABIDIOL
     Dosage: 12.3 MILLIGRAM/KILOGRAM, DAILY
     Route: 048
     Dates: start: 20240416
  11. DEPAKOTE ER [Concomitant]
     Active Substance: DIVALPROEX SODIUM
     Indication: Epilepsy
     Dosage: 250 MILLIGRAM
     Route: 048
     Dates: start: 20080615
  12. DIAZEPAM [Concomitant]
     Active Substance: DIAZEPAM
     Indication: Epilepsy
     Dosage: 20 MILLIGRAM
     Route: 054
     Dates: start: 20080615
  13. DILANTIN [Concomitant]
     Active Substance: PHENYTOIN
     Indication: Epilepsy
     Dosage: 100 MILLIGRAM, BID
     Route: 048
     Dates: start: 20080615
  14. LORAZEPAM [Concomitant]
     Active Substance: LORAZEPAM
     Indication: Epilepsy
     Dosage: 0.5 MILLIGRAM, QID
     Route: 048
     Dates: start: 20080615
  15. OMEPRAZOLE [Concomitant]
     Active Substance: OMEPRAZOLE
     Indication: Gastrooesophageal reflux disease
     Dosage: 40 MILLIGRAM, QD
     Route: 048
     Dates: start: 20080615
  16. SENNOSIDES [Concomitant]
     Active Substance: SENNOSIDES
     Indication: Constipation
     Dosage: 17.2 MILLIGRAM, DAILY
     Route: 048
     Dates: start: 20080615
  17. LEVOCARNITINE [Concomitant]
     Active Substance: LEVOCARNITINE
     Indication: Epilepsy
     Dosage: 330 MILLIGRAM, BID
     Route: 048
     Dates: start: 20150615
  18. LACOSAMIDE [Concomitant]
     Active Substance: LACOSAMIDE
     Indication: Epilepsy
     Dosage: 100 MILLIGRAM, QD
     Route: 048
     Dates: start: 20240221
  19. DIVALPROEX SODIUM [Concomitant]
     Active Substance: DIVALPROEX SODIUM
     Dosage: 500 MILLIGRAM, QAM
     Route: 048
     Dates: start: 2008
  20. PIPERACILLIN AND TAZOBACTAM [Concomitant]
     Active Substance: PIPERACILLIN SODIUM\TAZOBACTAM SODIUM
     Indication: Sepsis
     Dosage: 3.4 GRAM, EVERY 8 HOURS
     Route: 042
     Dates: start: 20240326, end: 20240329
  21. DOXYCYCLINE [Concomitant]
     Active Substance: DOXYCYCLINE\DOXYCYCLINE HYCLATE
     Indication: Sepsis
     Dosage: 100 MILLIGRAM, BID
     Route: 048
     Dates: start: 20240331, end: 20240406

REACTIONS (11)
  - Metabolic encephalopathy [Recovered/Resolved]
  - Dehydration [Recovering/Resolving]
  - Decreased appetite [Recovering/Resolving]
  - Hypernatraemia [Recovered/Resolved]
  - COVID-19 [Recovering/Resolving]
  - Abnormal behaviour [Unknown]
  - Device malfunction [Recovered/Resolved]
  - Sepsis [Recovered/Resolved]
  - Diarrhoea [Unknown]
  - Hypophagia [Recovered/Resolved]
  - Lethargy [Recovered/Resolved]

NARRATIVE: CASE EVENT DATE: 20231101
